FAERS Safety Report 9813068 (Version 1)
Quarter: 2014Q1

REPORT INFORMATION
  Report Type: Spontaneous
  Country: FR (occurrence: None)
  Receive Date: 20140108
  Receipt Date: 20140108
  Transmission Date: 20141002
  Serious: Yes (Other)
  Sender: FDA-Public Use
  Company Number: 2013351362

PATIENT
  Sex: 0

DRUGS (5)
  1. VANCOMYCIN [Suspect]
  2. DALTEPARIN SODIUM (DALTEPARIN SODIUM) UNKNOWN [Suspect]
  3. GENTAMICIN [Suspect]
  4. NICARDIPINE [Suspect]
  5. WARFARIN (WARFARIN) [Suspect]

REACTIONS (1)
  - Linear IgA disease [None]
